FAERS Safety Report 17099319 (Version 1)
Quarter: 2019Q4

REPORT INFORMATION
  Report Type: Spontaneous
  Country: US (occurrence: US)
  Receive Date: 20191201
  Receipt Date: 20191201
  Transmission Date: 20200122
  Serious: Yes (Disabling, Other)
  Sender: FDA-Public Use
  Company Number: None

PATIENT
  Age: 46 Year
  Sex: Male
  Weight: 112.5 kg

DRUGS (1)
  1. MESALAMINE 1.2GM [Suspect]
     Active Substance: MESALAMINE
     Indication: COLITIS ULCERATIVE
     Dosage: ?          QUANTITY:4 TABLET(S);?
     Route: 048
     Dates: start: 20180121, end: 20180320

REACTIONS (4)
  - Diarrhoea [None]
  - Dehydration [None]
  - Hypovitaminosis [None]
  - Product substitution issue [None]

NARRATIVE: CASE EVENT DATE: 20180121
